FAERS Safety Report 9268920 (Version 4)
Quarter: 2013Q3

REPORT INFORMATION
  Report Type: Report from Study
  Country: FI (occurrence: FI)
  Receive Date: 20130503
  Receipt Date: 20130906
  Transmission Date: 20140515
  Serious: Yes (Other)
  Sender: FDA-Public Use
  Company Number: FI-AMGEN-FINSP2013030256

PATIENT
  Age: 69 Year
  Sex: Male

DRUGS (5)
  1. XGEVA [Suspect]
     Indication: PROSTATE CANCER METASTATIC
     Dosage: 120 MG, QMO
     Route: 058
     Dates: start: 20111125, end: 20130325
  2. DENOSUMAB [Suspect]
     Indication: PRODUCT USED FOR UNKNOWN INDICATION
     Route: 065
  3. ENZALUTAMIDE [Concomitant]
     Indication: PROSTATE CANCER
     Dosage: UNK MG, QD
     Route: 048
     Dates: start: 20130102
  4. ELIGARD [Concomitant]
     Indication: PROSTATE CANCER
     Dosage: UNK MG, Q6MO
     Route: 058
     Dates: start: 20111104
  5. DOCETAXEL [Concomitant]

REACTIONS (1)
  - Osteonecrosis of jaw [Recovering/Resolving]
